FAERS Safety Report 9466161 (Version 1)
Quarter: 2013Q3

REPORT INFORMATION
  Report Type: Spontaneous
  Country: US (occurrence: US)
  Receive Date: 20130820
  Receipt Date: 20130820
  Transmission Date: 20140515
  Serious: Yes (Other)
  Sender: FDA-Public Use
  Company Number: US-BAXTER-2013BAX032182

PATIENT
  Age: 68 Year
  Sex: Female

DRUGS (11)
  1. CYCLOPHOSPHAMIDE FOR INJECTION, USP [Suspect]
     Indication: PRODUCT USED FOR UNKNOWN INDICATION
     Route: 042
  2. CYCLOPHOSPHAMIDE FOR INJECTION, USP [Suspect]
     Route: 042
  3. ACYCLOVIR                          /00587301/ [Concomitant]
     Indication: GENITAL HERPES
     Route: 042
  4. RITUXIMAB [Concomitant]
     Indication: GOODPASTURE^S SYNDROME
     Route: 065
  5. METHYLPREDNISOLONE [Concomitant]
     Indication: RENAL FAILURE ACUTE
     Route: 042
  6. METHYLPREDNISOLONE [Concomitant]
     Indication: GLOMERULONEPHRITIS ACUTE
  7. PREDNISONE [Concomitant]
     Indication: THROMBOCYTOPENIA
     Route: 048
  8. PREDNISONE [Concomitant]
     Indication: RENAL FAILURE ACUTE
  9. PREDNISONE [Concomitant]
     Indication: GLOMERULONEPHRITIS ACUTE
  10. ASPIRIN [Concomitant]
     Indication: PRODUCT USED FOR UNKNOWN INDICATION
     Route: 065
  11. METOPROLOL [Concomitant]
     Indication: PRODUCT USED FOR UNKNOWN INDICATION
     Route: 065

REACTIONS (3)
  - Thrombotic thrombocytopenic purpura [Recovered/Resolved]
  - Anaemia [Unknown]
  - Neutropenia [Unknown]
